FAERS Safety Report 9201797 (Version 6)
Quarter: 2013Q3

REPORT INFORMATION
  Report Type: Spontaneous
  Country: GB (occurrence: None)
  Receive Date: 20130404
  Receipt Date: 20130904
  Transmission Date: 20140515
  Serious: Yes (Hospitalization, Other)
  Sender: FDA-Public Use
  Company Number: SYM-2013-02004

PATIENT
  Age: 75 Year
  Sex: Male

DRUGS (13)
  1. 5 FU [Suspect]
     Indication: COLORECTAL CANCER METASTATIC
     Route: 040
     Dates: start: 20130208, end: 20130208
  2. AFLIBERCEPT [Suspect]
     Indication: COLORECTAL CANCER METASTATIC
     Route: 042
     Dates: start: 20130208, end: 20130208
  3. IRINOTECAN [Suspect]
     Indication: COLORECTAL CANCER METASTATIC
     Route: 042
     Dates: start: 20130208, end: 20130208
  4. LEUCOVORIN (FOLINIC ACID) (SOLUTION FOR INFUSION) (FOLINIC ACID) [Suspect]
     Indication: COLORECTAL CANCER METASTATIC
     Route: 042
     Dates: start: 20130208, end: 20130208
  5. LACTULOSE (LACTULOSE) [Concomitant]
  6. CHLORHEXIDINE (CHLORHEXIDINE) [Concomitant]
  7. AMLODIPINE (AMLODIPINE) [Suspect]
     Indication: HYPERTENSION
     Dates: start: 2006, end: 20130310
  8. SIMVASTATIN (SIMVASTATIN) [Concomitant]
  9. SENNA (SENNA ALEXANDRINA) [Concomitant]
  10. SUCRALFATE (SUCRALFATE) UNKNOWN [Concomitant]
  11. CORTICOSTEROIDS (CORTICOSTEROIDS) [Concomitant]
  12. LANSOPRAZOLE (LANSOPRAZOLE) [Concomitant]
  13. SEROTONIN ANTAGONISTS (SEROTONIN ANTAGONISTS) [Concomitant]

REACTIONS (8)
  - Syncope [None]
  - Hypotension [None]
  - Troponin I increased [None]
  - Electrocardiogram abnormal [None]
  - Oedema peripheral [None]
  - Haematuria [None]
  - Nephrotic syndrome [None]
  - Orthostatic hypotension [None]
